FAERS Safety Report 11283592 (Version 2)
Quarter: 2020Q2

REPORT INFORMATION
  Report Type: Report from Study
  Country: RO (occurrence: RO)
  Receive Date: 20150720
  Receipt Date: 20200626
  Transmission Date: 20200713
  Serious: Yes (Death, Other)
  Sender: FDA-Public Use
  Company Number: RO-ROCHE-1607174

PATIENT

DRUGS (10)
  1. ADALIMUMAB [Suspect]
     Active Substance: ADALIMUMAB
     Indication: RHEUMATOID ARTHRITIS
     Route: 065
  2. ETANERCEPT [Suspect]
     Active Substance: ETANERCEPT
     Indication: RHEUMATOID ARTHRITIS
     Route: 065
  3. GOLIMUMAB [Suspect]
     Active Substance: GOLIMUMAB
     Indication: RHEUMATOID ARTHRITIS
     Route: 065
  4. SECUKINUMAB. [Suspect]
     Active Substance: SECUKINUMAB
     Indication: RHEUMATOID ARTHRITIS
     Route: 065
  5. RITUXIMAB. [Suspect]
     Active Substance: RITUXIMAB
     Indication: RHEUMATOID ARTHRITIS
     Route: 065
  6. INFLIXIMAB [Suspect]
     Active Substance: INFLIXIMAB
     Indication: RHEUMATOID ARTHRITIS
     Route: 065
  7. ABATACEPT [Suspect]
     Active Substance: ABATACEPT
     Indication: RHEUMATOID ARTHRITIS
     Route: 065
  8. CERTOLIZUMAB [Suspect]
     Active Substance: CERTOLIZUMAB
     Indication: RHEUMATOID ARTHRITIS
     Route: 065
  9. TOCILIZUMAB. [Suspect]
     Active Substance: TOCILIZUMAB
     Indication: RHEUMATOID ARTHRITIS
     Route: 065
  10. BARICITINIB [Suspect]
     Active Substance: BARICITINIB
     Indication: RHEUMATOID ARTHRITIS
     Route: 065

REACTIONS (25)
  - Malignant nervous system neoplasm [Unknown]
  - Rash [Unknown]
  - Cardiac failure [Fatal]
  - Pulmonary tuberculosis [Unknown]
  - Central nervous system neoplasm [Unknown]
  - Sepsis [Fatal]
  - Urinary tract infection [Unknown]
  - Breast neoplasm [Unknown]
  - Respiratory tract infection [Fatal]
  - Skin infection [Unknown]
  - Skin cancer [Unknown]
  - Cerebrovascular accident [Fatal]
  - Infection [Fatal]
  - Lung neoplasm malignant [Unknown]
  - Hepatitis B reactivation [Unknown]
  - Rectal neoplasm [Unknown]
  - Renal cancer [Unknown]
  - Neoplasm malignant [Unknown]
  - Breast cancer [Unknown]
  - Coronary artery disease [Fatal]
  - Anaphylactic reaction [Unknown]
  - Extrapulmonary tuberculosis [Unknown]
  - Lymphoma [Unknown]
  - Renal neoplasm [Unknown]
  - Laryngeal cancer [Unknown]
